FAERS Safety Report 25495518 (Version 1)
Quarter: 2025Q2

REPORT INFORMATION
  Report Type: Report from Study
  Country: FR (occurrence: FR)
  Receive Date: 20250630
  Receipt Date: 20250630
  Transmission Date: 20250717
  Serious: Yes (Hospitalization, Other)
  Sender: MYLAN
  Company Number: FR-ASTELLAS-2025-AER-026536

PATIENT
  Age: 74 Year
  Sex: Male

DRUGS (36)
  1. OXALIPLATIN [Suspect]
     Active Substance: OXALIPLATIN
     Indication: Oesophageal adenocarcinoma
  2. OXALIPLATIN [Suspect]
     Active Substance: OXALIPLATIN
     Route: 065
  3. OXALIPLATIN [Suspect]
     Active Substance: OXALIPLATIN
     Route: 065
  4. OXALIPLATIN [Suspect]
     Active Substance: OXALIPLATIN
  5. FLUOROURACIL [Suspect]
     Active Substance: FLUOROURACIL
     Indication: Oesophageal adenocarcinoma
  6. FLUOROURACIL [Suspect]
     Active Substance: FLUOROURACIL
     Route: 065
  7. FLUOROURACIL [Suspect]
     Active Substance: FLUOROURACIL
     Route: 065
  8. FLUOROURACIL [Suspect]
     Active Substance: FLUOROURACIL
  9. LEVOLEUCOVORIN CALCIUM [Suspect]
     Active Substance: LEVOLEUCOVORIN CALCIUM
     Indication: Oesophageal adenocarcinoma
  10. LEVOLEUCOVORIN CALCIUM [Suspect]
     Active Substance: LEVOLEUCOVORIN CALCIUM
     Route: 065
  11. LEVOLEUCOVORIN CALCIUM [Suspect]
     Active Substance: LEVOLEUCOVORIN CALCIUM
     Route: 065
  12. LEVOLEUCOVORIN CALCIUM [Suspect]
     Active Substance: LEVOLEUCOVORIN CALCIUM
  13. ZOLBETUXIMAB [Suspect]
     Active Substance: ZOLBETUXIMAB
     Indication: Oesophageal adenocarcinoma
     Route: 065
     Dates: start: 20250415, end: 20250415
  14. ZOLBETUXIMAB [Suspect]
     Active Substance: ZOLBETUXIMAB
     Route: 065
     Dates: start: 20250415, end: 20250415
  15. ZOLBETUXIMAB [Suspect]
     Active Substance: ZOLBETUXIMAB
     Dates: start: 20250415, end: 20250415
  16. ZOLBETUXIMAB [Suspect]
     Active Substance: ZOLBETUXIMAB
     Dates: start: 20250415, end: 20250415
  17. ZOLBETUXIMAB [Suspect]
     Active Substance: ZOLBETUXIMAB
     Dosage: 400 MILLIGRAM/SQ. METER, BIWEEKLY (A MAINTENANCE DOSE OF 400 MG/ M? Q2W)
     Route: 065
     Dates: start: 20250428, end: 20250428
  18. ZOLBETUXIMAB [Suspect]
     Active Substance: ZOLBETUXIMAB
     Dosage: 400 MILLIGRAM/SQ. METER, BIWEEKLY (A MAINTENANCE DOSE OF 400 MG/ M? Q2W)
     Route: 065
     Dates: start: 20250428, end: 20250428
  19. ZOLBETUXIMAB [Suspect]
     Active Substance: ZOLBETUXIMAB
     Dosage: 400 MILLIGRAM/SQ. METER, BIWEEKLY (A MAINTENANCE DOSE OF 400 MG/ M? Q2W)
     Dates: start: 20250428, end: 20250428
  20. ZOLBETUXIMAB [Suspect]
     Active Substance: ZOLBETUXIMAB
     Dosage: 400 MILLIGRAM/SQ. METER, BIWEEKLY (A MAINTENANCE DOSE OF 400 MG/ M? Q2W)
     Dates: start: 20250428, end: 20250428
  21. ZOLBETUXIMAB [Suspect]
     Active Substance: ZOLBETUXIMAB
     Dosage: 400 MILLIGRAM/SQ. METER, BIWEEKLY (A MAINTENANCE DOSE OF 400 MG/ M? Q2W)
     Route: 065
     Dates: start: 20250515, end: 20250515
  22. ZOLBETUXIMAB [Suspect]
     Active Substance: ZOLBETUXIMAB
     Dosage: 400 MILLIGRAM/SQ. METER, BIWEEKLY (A MAINTENANCE DOSE OF 400 MG/ M? Q2W)
     Route: 065
     Dates: start: 20250515, end: 20250515
  23. ZOLBETUXIMAB [Suspect]
     Active Substance: ZOLBETUXIMAB
     Dosage: 400 MILLIGRAM/SQ. METER, BIWEEKLY (A MAINTENANCE DOSE OF 400 MG/ M? Q2W)
     Dates: start: 20250515, end: 20250515
  24. ZOLBETUXIMAB [Suspect]
     Active Substance: ZOLBETUXIMAB
     Dosage: 400 MILLIGRAM/SQ. METER, BIWEEKLY (A MAINTENANCE DOSE OF 400 MG/ M? Q2W)
     Dates: start: 20250515, end: 20250515
  25. ZOLBETUXIMAB [Suspect]
     Active Substance: ZOLBETUXIMAB
     Route: 065
  26. ZOLBETUXIMAB [Suspect]
     Active Substance: ZOLBETUXIMAB
     Route: 065
  27. ZOLBETUXIMAB [Suspect]
     Active Substance: ZOLBETUXIMAB
  28. ZOLBETUXIMAB [Suspect]
     Active Substance: ZOLBETUXIMAB
  29. ZOLBETUXIMAB [Suspect]
     Active Substance: ZOLBETUXIMAB
     Dosage: 400 MILLIGRAM/SQ. METER, BIWEEKLY
  30. ZOLBETUXIMAB [Suspect]
     Active Substance: ZOLBETUXIMAB
     Dosage: 400 MILLIGRAM/SQ. METER, BIWEEKLY
  31. ZOLBETUXIMAB [Suspect]
     Active Substance: ZOLBETUXIMAB
     Dosage: 400 MILLIGRAM/SQ. METER, BIWEEKLY
     Route: 065
  32. ZOLBETUXIMAB [Suspect]
     Active Substance: ZOLBETUXIMAB
     Dosage: 400 MILLIGRAM/SQ. METER, BIWEEKLY
     Route: 065
  33. ELOXATIN [Suspect]
     Active Substance: OXALIPLATIN
     Indication: Oesophageal adenocarcinoma
     Dosage: 150 MILLIGRAM, Q2W
     Dates: start: 20250429, end: 20250429
  34. ELOXATIN [Suspect]
     Active Substance: OXALIPLATIN
     Indication: Gastric cancer
     Dosage: 150 MILLIGRAM, Q2W
     Route: 042
     Dates: start: 20250429, end: 20250429
  35. ELOXATIN [Suspect]
     Active Substance: OXALIPLATIN
     Dosage: 150 MILLIGRAM, Q2W
     Route: 042
     Dates: start: 20250429, end: 20250429
  36. ELOXATIN [Suspect]
     Active Substance: OXALIPLATIN
     Dosage: 150 MILLIGRAM, Q2W
     Dates: start: 20250429, end: 20250429

REACTIONS (5)
  - Angioedema [Recovered/Resolved]
  - Hypersensitivity [Recovered/Resolved]
  - Blood pressure increased [Unknown]
  - Nausea [Unknown]
  - Product administration error [Unknown]
